FAERS Safety Report 9172042 (Version 1)
Quarter: 2013Q1

REPORT INFORMATION
  Report Type: Spontaneous
  Country: US (occurrence: US)
  Receive Date: 20130319
  Receipt Date: 20130319
  Transmission Date: 20140127
  Serious: No
  Sender: FDA-Public Use
  Company Number: US-009507513-1303USA000338

PATIENT
  Sex: Female

DRUGS (5)
  1. ZETIA [Suspect]
     Dosage: 10 MG, QD
     Route: 048
     Dates: end: 2013
  2. MICARDIS [Concomitant]
     Dosage: UNK
     Dates: end: 2013
  3. LOSARTAN POTASSIUM [Concomitant]
     Dosage: UNK
     Dates: start: 2013
  4. ESTRADIOL [Concomitant]
     Dosage: UNK
  5. NORETHINDRONE [Concomitant]
     Dosage: UNK

REACTIONS (1)
  - Rash generalised [Not Recovered/Not Resolved]
